FAERS Safety Report 12975416 (Version 1)
Quarter: 2016Q4

REPORT INFORMATION
  Report Type: Spontaneous
  Country: US (occurrence: US)
  Receive Date: 20161125
  Receipt Date: 20161125
  Transmission Date: 20170207
  Serious: Yes (Other)
  Sender: FDA-Public Use
  Company Number: None

PATIENT
  Age: 71 Year
  Sex: Male
  Weight: 70.31 kg

DRUGS (1)
  1. PURE BAKING SODA [Suspect]
     Active Substance: SODIUM BICARBONATE

REACTIONS (2)
  - Flushing [None]
  - Polycythaemia [None]
